FAERS Safety Report 12877783 (Version 6)
Quarter: 2017Q1

REPORT INFORMATION
  Report Type: Spontaneous
  Country: US (occurrence: US)
  Receive Date: 20161024
  Receipt Date: 20170217
  Transmission Date: 20170428
  Serious: No
  Sender: FDA-Public Use
  Company Number: US-PFIZER INC-2016492214

PATIENT
  Age: 60 Year
  Sex: Female
  Weight: 86.18 kg

DRUGS (6)
  1. PRISTIQ EXTENDED-RELEASE [Suspect]
     Active Substance: DESVENLAFAXINE SUCCINATE
     Indication: DEPRESSION
     Dosage: 25 MG, UNK
     Route: 048
     Dates: start: 2016, end: 2016
  2. LORAZEPAM. [Concomitant]
     Active Substance: LORAZEPAM
     Dosage: 0.5 MG, 4X/DAY
     Route: 048
  3. BENAZEPRIL [Concomitant]
     Active Substance: BENAZEPRIL HYDROCHLORIDE
     Indication: HYPERTENSION
     Dosage: 1.25 MG (1/2 OF A 5MG TABLET), 1X/DAY
     Route: 048
     Dates: start: 2016
  4. CRESTOR [Concomitant]
     Active Substance: ROSUVASTATIN CALCIUM
     Indication: BLOOD CHOLESTEROL ABNORMAL
     Dosage: 5 MG, FOUR TIMES A WEEK
     Dates: start: 2016
  5. LORAZEPAM. [Concomitant]
     Active Substance: LORAZEPAM
     Indication: ANXIETY
     Dosage: LESS THAN 2MG A DAY
     Dates: start: 2014
  6. PRISTIQ EXTENDED-RELEASE [Suspect]
     Active Substance: DESVENLAFAXINE SUCCINATE
     Indication: ANXIETY
     Dosage: 50 MG, 1X/DAY (50MG CAPSULE ONCE BY MOUTH AT BEDTIME)
     Route: 048
     Dates: start: 2016

REACTIONS (7)
  - Intentional product misuse [Not Recovered/Not Resolved]
  - Weight increased [Unknown]
  - Viral infection [Unknown]
  - Drug ineffective [Not Recovered/Not Resolved]
  - Medication residue present [Unknown]
  - Anxiety [Unknown]
  - Dehydration [Unknown]

NARRATIVE: CASE EVENT DATE: 2016
